FAERS Safety Report 5730244-8 (Version None)
Quarter: 2008Q2

REPORT INFORMATION
  Report Type: 
  Country: None (occurrence: None)
  Receive Date: 20080505
  Receipt Date: 20080505
  Transmission Date: 20081010
  Serious: Yes (Other)
  Sender: FDA-Public Use
  Company Number: None

PATIENT
  Sex: Female
  Weight: 64.8644 kg

DRUGS (1)
  1. DIGITEK 0.25MG BERLEK [Suspect]
     Dosage: 1/2 TAB DAILY PO
     Route: 048
     Dates: start: 20080316, end: 20080321

REACTIONS (1)
  - HEART RATE DECREASED [None]
